FAERS Safety Report 4559928-4 (Version None)
Quarter: 2005Q1

REPORT INFORMATION
  Report Type: 
  Country: None (occurrence: None)
  Receive Date: 20050103
  Receipt Date: 20040825
  Transmission Date: 20050727
  Serious: Yes (Other)
  Sender: FDA-Public Use
  Company Number: 2004UW18084

PATIENT
  Age: 79 Year
  Sex: Female
  Weight: 55.7924 kg

DRUGS (4)
  1. CRESTOR [Suspect]
     Indication: BLOOD CHOLESTEROL INCREASED
     Dosage: 10 MG PO
     Route: 048
     Dates: start: 20040803, end: 20040812
  2. VERAPAMIL [Concomitant]
  3. DIURETIC [Concomitant]
  4. PREMARIN [Concomitant]

REACTIONS (3)
  - DIFFICULTY IN WALKING [None]
  - MUSCLE SPASMS [None]
  - MYALGIA [None]
